FAERS Safety Report 8425930-5 (Version None)
Quarter: 2012Q2

REPORT INFORMATION
  Report Type: 
  Country: None (occurrence: None)
  Receive Date: 20120601
  Receipt Date: 20120528
  Transmission Date: 20120825
  Serious: No
  Sender: FDA-Public Use
  Company Number: 2012SP025722

PATIENT

DRUGS (1)
  1. SAPHRIS [Suspect]
     Indication: PSYCHOTIC DISORDER
     Dosage: 5 MG;QD;SL, 20 MG;QD;SL,10 MG;QD;SL
     Route: 060

REACTIONS (2)
  - OFF LABEL USE [None]
  - INSOMNIA [None]
